FAERS Safety Report 19370878 (Version 1)
Quarter: 2021Q2

REPORT INFORMATION
  Report Type: Spontaneous
  Country: JP (occurrence: JP)
  Receive Date: 20210603
  Receipt Date: 20210603
  Transmission Date: 20210717
  Serious: No
  Sender: FDA-Public Use
  Company Number: JP-LUPIN PHARMACEUTICALS INC.-2021-08260

PATIENT
  Age: 70 Year
  Sex: Female

DRUGS (5)
  1. PAROXETINE. [Suspect]
     Active Substance: PAROXETINE
     Indication: SCHIZOPHRENIA
  2. ARIPIPRAZOLE. [Suspect]
     Active Substance: ARIPIPRAZOLE
     Indication: SCHIZOPHRENIA
     Dosage: 24 MILLIGRAM, QD
     Route: 065
  3. PAROXETINE. [Suspect]
     Active Substance: PAROXETINE
     Indication: MAJOR DEPRESSION
     Dosage: 20 MILLIGRAM, QD
     Route: 065
  4. PEROSPIRONE [Suspect]
     Active Substance: PEROSPIRONE
     Indication: SCHIZOPHRENIA
     Dosage: UNK, INITIAL DOSE NOT STATED
     Route: 065
  5. PEROSPIRONE [Suspect]
     Active Substance: PEROSPIRONE
     Dosage: 36 MILLIGRAM, QD
     Route: 065

REACTIONS (3)
  - Polyuria [Unknown]
  - Constipation [Unknown]
  - Parkinsonism [Recovering/Resolving]
